FAERS Safety Report 11329809 (Version 4)
Quarter: 2015Q4

REPORT INFORMATION
  Report Type: Spontaneous
  Country: JP (occurrence: JP)
  Receive Date: 20150803
  Receipt Date: 20151005
  Transmission Date: 20160304
  Serious: Yes (Hospitalization)
  Sender: FDA-Public Use
  Company Number: PHJP2015JP013191

PATIENT
  Age: 82 Year
  Sex: Female
  Weight: 45 kg

DRUGS (6)
  1. SAIREITO                           /08000901/ [Suspect]
     Active Substance: HERBALS
     Indication: BREAST CANCER
     Dosage: 3 G, TID
     Route: 048
     Dates: start: 20150623, end: 20150724
  2. BLOPRESS [Concomitant]
     Active Substance: CANDESARTAN CILEXETIL
     Indication: HYPERTENSION
     Dosage: 8 MG, QD
     Route: 048
  3. FEMARA [Suspect]
     Active Substance: LETROZOLE
     Indication: BREAST CANCER
     Dosage: 2.5 MG, QD
     Route: 048
     Dates: start: 20150710, end: 20150724
  4. HERBAL EXTRACT NOS [Suspect]
     Active Substance: HERBALS
     Indication: DECREASED APPETITE
     Dosage: 2.5 G, TID
     Route: 048
     Dates: start: 20150623, end: 20150624
  5. HERBAL EXTRACT NOS [Suspect]
     Active Substance: HERBALS
     Indication: DYSPEPSIA
  6. ONEALFA [Concomitant]
     Active Substance: ALFACALCIDOL
     Indication: OSTEOPOROSIS
     Dosage: 0.5 MG, QD
     Route: 048

REACTIONS (1)
  - Drug-induced liver injury [Recovering/Resolving]

NARRATIVE: CASE EVENT DATE: 20150724
